FAERS Safety Report 23607081 (Version 3)
Quarter: 2024Q2

REPORT INFORMATION
  Report Type: Spontaneous
  Country: DE (occurrence: DE)
  Receive Date: 20240307
  Receipt Date: 20240617
  Transmission Date: 20240716
  Serious: Yes (Life-Threatening, Hospitalization, Other)
  Sender: FDA-Public Use
  Company Number: DE-ABBVIE-5669314

PATIENT
  Age: 36 Year
  Sex: Female
  Weight: 120 kg

DRUGS (3)
  1. SKYRIZI [Suspect]
     Active Substance: RISANKIZUMAB-RZAA
     Indication: Crohn^s disease
     Dosage: FIRST INFUSION?FREQUENCY TEXT: 0TH WEEK
     Route: 042
     Dates: start: 20231127, end: 20231127
  2. SKYRIZI [Suspect]
     Active Substance: RISANKIZUMAB-RZAA
     Indication: Crohn^s disease
     Dosage: SECOND INFUSION?FREQUENCY TEXT: 8TH WEEK
     Route: 042
     Dates: start: 20231227, end: 20231227
  3. Novalgin [Concomitant]
     Indication: Product used for unknown indication

REACTIONS (3)
  - Acute myeloid leukaemia [Recovered/Resolved]
  - White blood cell count increased [Unknown]
  - Platelet count decreased [Unknown]

NARRATIVE: CASE EVENT DATE: 20240110
